FAERS Safety Report 16317178 (Version 1)
Quarter: 2019Q2

REPORT INFORMATION
  Report Type: Spontaneous
  Country: US (occurrence: US)
  Receive Date: 20190515
  Receipt Date: 20190515
  Transmission Date: 20190711
  Serious: No
  Sender: FDA-Public Use
  Company Number: US-SA-2019SA132394

PATIENT
  Age: 59 Year
  Sex: Female

DRUGS (3)
  1. BETAMETH [BETAMETHASONE SODIUM PHOSPHATE] [Concomitant]
     Dosage: 0.12 %, UNK
     Route: 065
  2. AZITHROMYCIN ANHYDROUS. [Concomitant]
     Active Substance: AZITHROMYCIN ANHYDROUS
     Dosage: UNK, UNK
     Route: 065
  3. DUPIXENT [Suspect]
     Active Substance: DUPILUMAB
     Indication: DERMATITIS ATOPIC
     Dosage: 300 MG, QOW
     Route: 058
     Dates: start: 20190412

REACTIONS (1)
  - Dermatitis atopic [Not Recovered/Not Resolved]
